FAERS Safety Report 24229298 (Version 1)
Quarter: 2024Q3

REPORT INFORMATION
  Report Type: Spontaneous
  Country: FR (occurrence: FR)
  Receive Date: 20240820
  Receipt Date: 20240820
  Transmission Date: 20241017
  Serious: Yes (Other)
  Sender: GE HEALTHCARE
  Company Number: None

PATIENT
  Age: 72 Year
  Sex: Female

DRUGS (4)
  1. CLARISCAN [Suspect]
     Active Substance: GADOTERATE MEGLUMINE
     Indication: Scan with contrast
     Dosage: 1 DF, TOTAL
     Route: 042
     Dates: start: 202201, end: 202201
  2. PERINDOPRIL [Concomitant]
     Active Substance: PERINDOPRIL
     Route: 065
  3. BISOPROLOL [Concomitant]
     Active Substance: BISOPROLOL\BISOPROLOL FUMARATE
     Route: 065
  4. EZETIMIBE\ROSUVASTATIN [Concomitant]
     Active Substance: EZETIMIBE\ROSUVASTATIN
     Route: 065

REACTIONS (2)
  - Erythema [Recovered/Resolved]
  - Pruritus [Recovered/Resolved]

NARRATIVE: CASE EVENT DATE: 20220101
